FAERS Safety Report 24928138 (Version 1)
Quarter: 2025Q1

REPORT INFORMATION
  Report Type: Spontaneous
  Country: US (occurrence: US)
  Receive Date: 20250205
  Receipt Date: 20250205
  Transmission Date: 20250408
  Serious: Yes (Hospitalization, Other)
  Sender: SPECGX
  Company Number: US-SPECGX-T202500374

PATIENT

DRUGS (8)
  1. METHADONE [Suspect]
     Active Substance: METHADONE HYDROCHLORIDE
     Indication: Product used for unknown indication
     Route: 064
  2. MORPHINE [Suspect]
     Active Substance: MORPHINE
     Indication: Drug withdrawal syndrome neonatal
     Route: 065
  3. COCAINE [Suspect]
     Active Substance: COCAINE
     Indication: Product used for unknown indication
     Route: 064
  4. BUPRENORPHINE [Suspect]
     Active Substance: BUPRENORPHINE
     Indication: Product used for unknown indication
     Route: 064
  5. CITALOPRAM [Suspect]
     Active Substance: CITALOPRAM
     Indication: Product used for unknown indication
     Route: 064
  6. LEVOTHYROXINE [Suspect]
     Active Substance: LEVOTHYROXINE
     Indication: Product used for unknown indication
     Route: 064
  7. URSODIOL [Suspect]
     Active Substance: URSODIOL
     Indication: Product used for unknown indication
     Route: 064
  8. QUETIAPINE [Suspect]
     Active Substance: QUETIAPINE
     Indication: Product used for unknown indication
     Route: 064

REACTIONS (9)
  - Premature baby [Unknown]
  - Respiratory distress [Unknown]
  - Drug withdrawal syndrome neonatal [Unknown]
  - Positive airway pressure therapy [Unknown]
  - Mechanical ventilation [Unknown]
  - Tonic posturing [Unknown]
  - Product use issue [Unknown]
  - Product use in unapproved indication [Unknown]
  - Foetal exposure during pregnancy [Unknown]
